FAERS Safety Report 9925239 (Version 1)
Quarter: 2014Q1

REPORT INFORMATION
  Report Type: Spontaneous
  Country: GB (occurrence: GB)
  Receive Date: 20140226
  Receipt Date: 20140226
  Transmission Date: 20141002
  Serious: Yes (Other)
  Sender: FDA-Public Use
  Company Number: GB-PFIZER INC-2014052088

PATIENT
  Sex: 0

DRUGS (1)
  1. SUTENT [Suspect]

REACTIONS (1)
  - Myocardial infarction [Unknown]
